FAERS Safety Report 22814251 (Version 3)
Quarter: 2024Q2

REPORT INFORMATION
  Report Type: Spontaneous
  Country: JP (occurrence: JP)
  Receive Date: 20230811
  Receipt Date: 20240416
  Transmission Date: 20240716
  Serious: Yes (Other)
  Sender: FDA-Public Use
  Company Number: JP-SA-2023SA233093

PATIENT
  Age: 6 Month
  Sex: Female

DRUGS (3)
  1. SABRIL [Suspect]
     Active Substance: VIGABATRIN
     Indication: Infantile spasms
     Dosage: 500 MG, BID (90 MG/KG/DAY)
     Route: 048
     Dates: start: 20210428
  2. SABRIL [Suspect]
     Active Substance: VIGABATRIN
     Dosage: 250 MG, BID
     Route: 048
     Dates: start: 20210326, end: 20210427
  3. VALPROATE SODIUM [Concomitant]
     Active Substance: VALPROATE SODIUM
     Indication: Infantile spasms
     Dosage: 200 MG/DAY
     Route: 048
     Dates: start: 2021

REACTIONS (2)
  - Magnetic resonance imaging head abnormal [Not Recovered/Not Resolved]
  - Aspartate aminotransferase decreased [Not Recovered/Not Resolved]

NARRATIVE: CASE EVENT DATE: 20210331
